FAERS Safety Report 4974016-0 (Version None)
Quarter: 2006Q2

REPORT INFORMATION
  Report Type: 
  Country: None (occurrence: None)
  Receive Date: 20060410
  Receipt Date: 20060327
  Transmission Date: 20061013
  Serious: Yes (Other)
  Sender: FDA-Public Use
  Company Number: B0419006A

PATIENT
  Age: 43 Year
  Sex: Male

DRUGS (2)
  1. ALKERAN [Suspect]
     Indication: AMYLOIDOSIS
     Dosage: 200 MG/M2
  2. STEM CELL TRANSPLANT [Concomitant]

REACTIONS (9)
  - DIARRHOEA [None]
  - DRUG TOXICITY [None]
  - MUCOSAL INFLAMMATION [None]
  - NAUSEA [None]
  - NEUTROPENIA [None]
  - PYREXIA [None]
  - RENAL FAILURE ACUTE [None]
  - STEM CELL TRANSPLANT [None]
  - VOMITING [None]
